FAERS Safety Report 5470138-9 (Version None)
Quarter: 2007Q3

REPORT INFORMATION
  Report Type: 
  Country: None (occurrence: None)
  Receive Date: 20070927
  Receipt Date: 20070917
  Transmission Date: 20080115
  Serious: Yes (Life-Threatening)
  Sender: FDA-Public Use
  Company Number: DE-PFIZER INC-2007078684

PATIENT
  Sex: Female
  Weight: 95 kg

DRUGS (16)
  1. SU-011,248 [Suspect]
     Indication: BREAST CANCER
     Route: 048
     Dates: start: 20070727, end: 20070913
  2. CAPECITABINE [Suspect]
     Indication: BREAST CANCER
     Route: 048
  3. VITAMIN B6 [Concomitant]
     Dosage: TEXT:40 MG
     Route: 048
  4. LOPERAMIDE HYDROCHLORIDE [Concomitant]
     Dosage: TEXT:MAX. 12 MG-FREQ:DAILY, AS NECESSARY
     Route: 048
  5. PASPERTIN [Concomitant]
     Dosage: TEXT:3X30 DROPS
     Route: 048
  6. TEGRETOL [Concomitant]
     Dosage: TEXT:100 MG
     Route: 048
  7. LYRICA [Concomitant]
     Dosage: TEXT:75 MG
     Route: 048
  8. ARCOXIA [Concomitant]
     Dosage: TEXT:90 MG
     Route: 048
  9. PANTOPRAZOLE SODIUM [Concomitant]
     Dosage: TEXT:40 MG
     Route: 048
  10. LEVOTHYROXINE SODIUM [Concomitant]
     Dosage: TEXT:200
     Route: 048
  11. DEXAMETASON [Concomitant]
     Dosage: TEXT:4 MG
     Route: 048
  12. LAMOTRIGINE [Concomitant]
     Dosage: TEXT:100
     Route: 048
  13. KEPPRA [Concomitant]
     Dosage: TEXT:1000
     Route: 048
  14. ENOXAPARIN SODIUM [Concomitant]
     Dosage: TEXT:40
     Route: 030
     Dates: start: 20070401, end: 20070911
  15. PENICILLIN [Concomitant]
     Dosage: TEXT:10 MEGA
     Route: 042
  16. LIQUAEMIN INJ [Concomitant]
     Route: 042

REACTIONS (1)
  - PELVIC VENOUS THROMBOSIS [None]
